FAERS Safety Report 9225087 (Version 1)
Quarter: 2013Q2

REPORT INFORMATION
  Report Type: Report from Study
  Country: US (occurrence: US)
  Receive Date: 20130411
  Receipt Date: 20130411
  Transmission Date: 20140414
  Serious: Yes (Other)
  Sender: FDA-Public Use
  Company Number: US-BAYER-2013-042866

PATIENT
  Sex: Female

DRUGS (4)
  1. DACARBAZINE [Suspect]
     Indication: HODGKIN^S DISEASE
  2. ADRIAMYCIN [Suspect]
     Indication: HODGKIN^S DISEASE
  3. BLEOMYCIN [Suspect]
     Indication: HODGKIN^S DISEASE
  4. VINBLASTINE [Suspect]
     Indication: HODGKIN^S DISEASE

REACTIONS (2)
  - Stillbirth [None]
  - Exposure during pregnancy [None]
